FAERS Safety Report 21332963 (Version 2)
Quarter: 2022Q3

REPORT INFORMATION
  Report Type: Report from Study
  Country: US (occurrence: US)
  Receive Date: 20220914
  Receipt Date: 20220919
  Transmission Date: 20221027
  Serious: Yes (Hospitalization)
  Sender: FDA-Public Use
  Company Number: US-JNJFOC-20220915758

PATIENT
  Age: 29 Year
  Sex: Female
  Weight: 49.940 kg

DRUGS (6)
  1. INFLIXIMAB [Suspect]
     Active Substance: INFLIXIMAB
     Indication: Inflammatory bowel disease
     Route: 041
     Dates: start: 20060313, end: 20061211
  2. CYMBALTA [Concomitant]
     Active Substance: DULOXETINE HYDROCHLORIDE
     Indication: Anxiety
  3. ATIVAN [Concomitant]
     Active Substance: LORAZEPAM
     Indication: Depression
  4. STELARA [Concomitant]
     Active Substance: USTEKINUMAB
     Indication: Product used for unknown indication
     Dates: start: 201702, end: 201704
  5. STELARA [Concomitant]
     Active Substance: USTEKINUMAB
     Dates: start: 20171005, end: 20200911
  6. STELARA [Concomitant]
     Active Substance: USTEKINUMAB
     Dates: start: 20211230

REACTIONS (1)
  - Malnutrition [Recovered/Resolved]

NARRATIVE: CASE EVENT DATE: 20220709
